FAERS Safety Report 15902756 (Version 1)
Quarter: 2019Q1

REPORT INFORMATION
  Report Type: Report from Study
  Country: DE (occurrence: DE)
  Receive Date: 20190202
  Receipt Date: 20190202
  Transmission Date: 20190417
  Serious: Yes (Hospitalization, Other)
  Sender: FDA-Public Use
  Company Number: DE-ROCHE-1509089

PATIENT
  Age: 67 Year
  Sex: Female
  Weight: 56 kg

DRUGS (4)
  1. AVASTIN [Suspect]
     Active Substance: BEVACIZUMAB
     Indication: OVARIAN CANCER
     Route: 042
     Dates: start: 20140313, end: 20140313
  2. AVASTIN [Suspect]
     Active Substance: BEVACIZUMAB
     Route: 042
     Dates: start: 20140430
  3. CARBOPLATIN. [Concomitant]
     Active Substance: CARBOPLATIN
     Indication: OVARIAN CANCER
     Dosage: DOSE 470-620 MG
     Route: 042
     Dates: start: 20140313, end: 20140703
  4. PACLITAXEL. [Concomitant]
     Active Substance: PACLITAXEL
     Indication: OVARIAN CANCER
     Route: 042
     Dates: start: 20140313, end: 20140703

REACTIONS (2)
  - Subileus [Recovered/Resolved]
  - Ascites [Recovering/Resolving]

NARRATIVE: CASE EVENT DATE: 20140520
